FAERS Safety Report 25216194 (Version 2)
Quarter: 2025Q2

REPORT INFORMATION
  Report Type: Spontaneous
  Country: US (occurrence: US)
  Receive Date: 20250418
  Receipt Date: 20250602
  Transmission Date: 20250717
  Serious: No
  Sender: ROCHE
  Company Number: US-ROCHE-10000250588

PATIENT
  Sex: Female

DRUGS (3)
  1. RITUXAN [Suspect]
     Active Substance: RITUXIMAB
     Indication: Rheumatoid arthritis
     Route: 065
  2. RUXIENCE [Suspect]
     Active Substance: RITUXIMAB-PVVR
     Indication: Rheumatoid arthritis
     Route: 042
  3. TYLENOL [Concomitant]
     Active Substance: ACETAMINOPHEN

REACTIONS (9)
  - COVID-19 [Unknown]
  - Illness [Unknown]
  - Vomiting [Unknown]
  - Abdominal pain [Unknown]
  - Throat irritation [Unknown]
  - Chest discomfort [Unknown]
  - Bone disorder [Unknown]
  - Pallor [Unknown]
  - Arthralgia [Unknown]
